FAERS Safety Report 20657144 (Version 1)
Quarter: 2022Q1

REPORT INFORMATION
  Report Type: Spontaneous
  Country: US (occurrence: US)
  Receive Date: 20220331
  Receipt Date: 20220331
  Transmission Date: 20220424
  Serious: No
  Sender: FDA-Public Use
  Company Number: US-BAXTER-2022BAX006743

PATIENT
  Sex: Female

DRUGS (1)
  1. ARTISS [Suspect]
     Active Substance: FIBRINOGEN HUMAN\THROMBIN HUMAN
     Indication: Occupational exposure to product
     Route: 065
     Dates: start: 20220323

REACTIONS (3)
  - Occupational exposure to product [Unknown]
  - Product delivery mechanism issue [Unknown]
  - Discomfort [Unknown]

NARRATIVE: CASE EVENT DATE: 20220323
